FAERS Safety Report 5775110-7 (Version None)
Quarter: 2008Q2

REPORT INFORMATION
  Report Type: 
  Country: None (occurrence: None)
  Receive Date: 20080616
  Receipt Date: 20080609
  Transmission Date: 20081010
  Serious: Yes (Life-Threatening)
  Sender: FDA-Public Use
  Company Number: APP200800490

PATIENT
  Age: 73 Year
  Sex: Female
  Weight: 95.4 kg

DRUGS (8)
  1. HEPARIN SODIUM INJECTION [Suspect]
     Indication: CARDIOPULMONARY BYPASS
     Dosage: SEE IMAGE
     Route: 040
     Dates: start: 20080609, end: 20080609
  2. HEPARIN SODIUM INJECTION [Suspect]
     Indication: CARDIOPULMONARY BYPASS
     Dosage: SEE IMAGE
     Route: 040
     Dates: start: 20080609, end: 20080609
  3. HEPARIN SODIUM INJECTION [Suspect]
     Indication: CARDIOPULMONARY BYPASS
     Dosage: SEE IMAGE
     Route: 040
     Dates: start: 20080609, end: 20080609
  4. HEPARIN SODIUM INJECTION [Suspect]
     Indication: CARDIOPULMONARY BYPASS
     Dosage: SEE IMAGE
     Route: 040
     Dates: start: 20080609, end: 20080609
  5. HEPARIN SODIUM INJECTION [Suspect]
     Indication: CARDIOPULMONARY BYPASS
     Dosage: SEE IMAGE
     Route: 040
     Dates: start: 20080609, end: 20080609
  6. HEPARIN SODIUM INJECTION [Suspect]
     Indication: CARDIOPULMONARY BYPASS
     Dosage: 20000 USP UNITS, INTRAVENOUS BOLUS
     Route: 040
     Dates: start: 20080609, end: 20080609
  7. HEPARIN SODIUM INJECTION [Suspect]
  8. HEPARIN SODIUM INJECTION [Suspect]

REACTIONS (1)
  - HEPARIN RESISTANCE [None]
